FAERS Safety Report 15231303 (Version 2)
Quarter: 2019Q1

REPORT INFORMATION
  Report Type: Spontaneous
  Country: US (occurrence: US)
  Receive Date: 20180802
  Receipt Date: 20190321
  Transmission Date: 20190417
  Serious: Yes (Death, Other)
  Sender: FDA-Public Use
  Company Number: US-HORIZON-VIM-0821-2018

PATIENT
  Age: 73 Year
  Sex: Female
  Weight: 77 kg

DRUGS (31)
  1. PRILOSEC OTC [Suspect]
     Active Substance: OMEPRAZOLE MAGNESIUM
     Dosage: UNK
     Route: 048
     Dates: start: 1989, end: 2011
  2. DEXILANT [Suspect]
     Active Substance: DEXLANSOPRAZOLE
     Dosage: UNK
     Route: 065
     Dates: start: 1989, end: 2011
  3. PREVACID 24 HR [Suspect]
     Active Substance: LANSOPRAZOLE
     Dosage: UNK
     Route: 065
     Dates: start: 1989, end: 2011
  4. RENVELA [Concomitant]
     Active Substance: SEVELAMER CARBONATE
  5. ATACAND [Concomitant]
     Active Substance: CANDESARTAN CILEXETIL
  6. MEGACE [Concomitant]
     Active Substance: MEGESTROL ACETATE
  7. METOCLOPRAMIDE. [Concomitant]
     Active Substance: METOCLOPRAMIDE
  8. ACIPHEX [Suspect]
     Active Substance: RABEPRAZOLE SODIUM
     Dosage: UNK
     Route: 065
     Dates: start: 1989, end: 2011
  9. IBUPROFEN. [Concomitant]
     Active Substance: IBUPROFEN
  10. CLONIDINE. [Concomitant]
     Active Substance: CLONIDINE
  11. GLYBURIDE. [Concomitant]
     Active Substance: GLYBURIDE
  12. COZAAR [Concomitant]
     Active Substance: LOSARTAN POTASSIUM
  13. DIOVAN [Concomitant]
     Active Substance: VALSARTAN
  14. PROTONIX [Suspect]
     Active Substance: PANTOPRAZOLE SODIUM
     Dosage: PANTOPRAZOLE
     Route: 048
     Dates: start: 20111213
  15. VICODIN [Concomitant]
     Active Substance: ACETAMINOPHEN\HYDROCODONE BITARTRATE
  16. BENICAR [Concomitant]
     Active Substance: OLMESARTAN MEDOXOMIL
  17. TYLENOL WITH CODEINE [Concomitant]
     Active Substance: ACETAMINOPHEN\CODEINE PHOSPHATE
  18. NEXIUM 24HR [Suspect]
     Active Substance: ESOMEPRAZOLE MAGNESIUM
     Dosage: UNK
     Route: 048
     Dates: start: 1989, end: 2011
  19. PREVACID [Suspect]
     Active Substance: LANSOPRAZOLE
     Dosage: UNK
     Route: 065
     Dates: start: 1989, end: 2011
  20. VIMOVO [Suspect]
     Active Substance: ESOMEPRAZOLE MAGNESIUM\NAPROXEN
     Indication: PRODUCT USED FOR UNKNOWN INDICATION
     Dosage: UNK
     Route: 048
     Dates: start: 1989, end: 2011
  21. PRILOSEC [Suspect]
     Active Substance: OMEPRAZOLE MAGNESIUM
     Dosage: UNK
     Route: 048
     Dates: start: 1989, end: 2011
  22. PROTONIX [Suspect]
     Active Substance: PANTOPRAZOLE SODIUM
     Route: 048
     Dates: start: 20090806
  23. NEURONTIN [Concomitant]
     Active Substance: GABAPENTIN
  24. GLIPIZIDE. [Concomitant]
     Active Substance: GLIPIZIDE
  25. SENSIPAR [Concomitant]
     Active Substance: CINACALCET HYDROCHLORIDE
  26. NEXIUM [Suspect]
     Active Substance: ESOMEPRAZOLE MAGNESIUM
     Dosage: UNK
     Route: 048
     Dates: start: 20051206
  27. NEXIUM [Suspect]
     Active Substance: ESOMEPRAZOLE MAGNESIUM
     Dosage: UNK
     Route: 048
     Dates: start: 1989, end: 2011
  28. PROTONIX [Suspect]
     Active Substance: PANTOPRAZOLE SODIUM
     Dosage: UNK
     Route: 065
     Dates: start: 1989, end: 2011
  29. PREVACID [Suspect]
     Active Substance: LANSOPRAZOLE
     Route: 065
     Dates: start: 20060509
  30. NITROGLYCERIN. [Concomitant]
     Active Substance: NITROGLYCERIN
  31. PROCARDIA [Concomitant]
     Active Substance: NIFEDIPINE

REACTIONS (7)
  - Chronic kidney disease [Unknown]
  - Death [Fatal]
  - End stage renal disease [Unknown]
  - Hyperparathyroidism secondary [Unknown]
  - Renal failure [Unknown]
  - Nephrogenic anaemia [Unknown]
  - Acute kidney injury [Unknown]

NARRATIVE: CASE EVENT DATE: 20051216
